FAERS Safety Report 9290723 (Version 2)
Quarter: 2013Q2

REPORT INFORMATION
  Report Type: Spontaneous
  Country: JP (occurrence: JP)
  Receive Date: 20130515
  Receipt Date: 20130515
  Transmission Date: 20140414
  Serious: Yes (Hospitalization)
  Sender: FDA-Public Use
  Company Number: PHHY2012JP112602

PATIENT
  Age: 45 Year
  Sex: Female
  Weight: 73 kg

DRUGS (4)
  1. CEFTRIAXONE SODIUM SANDOZ [Suspect]
     Indication: PHARYNGITIS
     Dosage: 1 G, DAILY
     Route: 042
     Dates: start: 20121117, end: 20121119
  2. SAWACILLIN [Suspect]
     Indication: PHARYNGITIS BACTERIAL
     Dosage: 4 DF, DAILY
     Route: 048
     Dates: start: 20121120, end: 20121121
  3. ACTIT [Concomitant]
     Dosage: 200 ML
  4. LOXOPROFEN [Concomitant]
     Indication: OROPHARYNGEAL PAIN
     Dosage: 180 MG, DAILY
     Dates: start: 20121118

REACTIONS (5)
  - Lip swelling [Recovered/Resolved]
  - Rash [Recovered/Resolved]
  - Pruritus [Recovered/Resolved]
  - Stomatitis [None]
  - Lip pruritus [None]
